FAERS Safety Report 24298889 (Version 1)
Quarter: 2024Q3

REPORT INFORMATION
  Report Type: Spontaneous
  Country: IT (occurrence: IT)
  Receive Date: 20240909
  Receipt Date: 20240909
  Transmission Date: 20241016
  Serious: Yes (Other)
  Sender: FRESENIUS KABI
  Company Number: None

PATIENT
  Age: 77 Year
  Sex: Female
  Weight: 59 kg

DRUGS (3)
  1. PACLITAXEL [Suspect]
     Active Substance: PACLITAXEL
     Indication: Product used for unknown indication
     Dosage: CONCENTRATION 6 MG/ML IN 300 MG/VIAL.?FORM OF ADMIN: SOLUTION FOR INJECTION
     Route: 042
     Dates: start: 20240712, end: 20240712
  2. CHLORPHENIRAMINE MALEATE [Concomitant]
     Active Substance: CHLORPHENIRAMINE MALEATE
     Indication: Product used for unknown indication
  3. CARBOPLATIN PFIZER [CARBOPLATIN] [Concomitant]
     Indication: Product used for unknown indication

REACTIONS (3)
  - Erythema [Recovered/Resolved]
  - Pruritus [Recovered/Resolved]
  - Chest discomfort [Recovered/Resolved]

NARRATIVE: CASE EVENT DATE: 20240712
